FAERS Safety Report 11515194 (Version 1)
Quarter: 2015Q3

REPORT INFORMATION
  Report Type: Spontaneous
  Country: AR (occurrence: AR)
  Receive Date: 20150916
  Receipt Date: 20150916
  Transmission Date: 20151125
  Serious: Yes (Other)
  Sender: FDA-Public Use
  Company Number: AR-IMPAX LABORATORIES, INC-2015-IPXL-00927

PATIENT
  Age: 82 Year
  Sex: Female

DRUGS (2)
  1. DIVALPROEX SODIUM ER [Suspect]
     Active Substance: DIVALPROEX SODIUM
     Indication: STATUS EPILEPTICUS
     Dosage: 1500 MG, DAILY
     Route: 065
  2. MEROPENEM. [Interacting]
     Active Substance: MEROPENEM
     Indication: URINARY TRACT INFECTION
     Dosage: UNK
     Route: 065

REACTIONS (4)
  - Seizure [Recovering/Resolving]
  - Shock [Recovering/Resolving]
  - Coma scale abnormal [Recovering/Resolving]
  - Drug interaction [Recovering/Resolving]
